FAERS Safety Report 22384769 (Version 3)
Quarter: 2024Q2

REPORT INFORMATION
  Report Type: Spontaneous
  Country: US (occurrence: US)
  Receive Date: 20230530
  Receipt Date: 20240510
  Transmission Date: 20240716
  Serious: No
  Sender: FDA-Public Use
  Company Number: US-PFIZER INC-202300199079

PATIENT
  Age: 75 Year
  Sex: Female

DRUGS (4)
  1. SOMAVERT [Suspect]
     Active Substance: PEGVISOMANT
     Indication: Acromegaly
     Dosage: 15 MG, 1X/DAY (IT WAS EVERY DAY FOR 3 MONTHS)
     Dates: start: 202301
  2. SOMAVERT [Suspect]
     Active Substance: PEGVISOMANT
     Dosage: 15 MG, 2X/WEEK (THEN IT WENT TO TWICE A WEEK)
     Dates: start: 2023, end: 20230515
  3. SOMAVERT [Suspect]
     Active Substance: PEGVISOMANT
     Dosage: 40 MG ON DAY 1
     Route: 058
  4. SOMAVERT [Suspect]
     Active Substance: PEGVISOMANT
     Dosage: 10 MG, DAILY
     Route: 058

REACTIONS (2)
  - Injection site mass [Not Recovered/Not Resolved]
  - Off label use [Unknown]

NARRATIVE: CASE EVENT DATE: 20230101
